FAERS Safety Report 4653133-9 (Version None)
Quarter: 2005Q2

REPORT INFORMATION
  Report Type: 
  Country: None (occurrence: None)
  Receive Date: 20050502
  Receipt Date: 20050502
  Transmission Date: 20051028
  Serious: Yes (Hospitalization)
  Sender: FDA-Public Use
  Company Number: None

PATIENT
  Age: 53 Year
  Sex: Female
  Weight: 66.6788 kg

DRUGS (1)
  1. SEPTOCAINE [Suspect]
     Indication: LOCAL ANAESTHESIA
     Dates: start: 20050419, end: 20050419

REACTIONS (6)
  - ANXIETY [None]
  - CHEST DISCOMFORT [None]
  - CHEST PAIN [None]
  - DYSPNOEA [None]
  - HYPERTENSION [None]
  - TREMOR [None]
